FAERS Safety Report 19920919 (Version 1)
Quarter: 2021Q4

REPORT INFORMATION
  Report Type: Spontaneous
  Country: IT (occurrence: IT)
  Receive Date: 20211006
  Receipt Date: 20211006
  Transmission Date: 20220303
  Serious: Yes (Hospitalization, Other)
  Sender: FDA-Public Use
  Company Number: IT-LUPIN PHARMACEUTICALS INC.-2021-18747

PATIENT
  Age: 54 Year
  Sex: Female

DRUGS (2)
  1. SULFAMETHOXAZOLE AND TRIMETHOPRIM [Suspect]
     Active Substance: SULFAMETHOXAZOLE\TRIMETHOPRIM
     Indication: Toxoplasmosis prophylaxis
     Dosage: 1 TAB X 3 TIMES/ WEEK SCHEDULED FOR SIX MONTHS
     Route: 065
  2. ATOVAQUONE [Suspect]
     Active Substance: ATOVAQUONE
     Indication: Toxoplasmosis prophylaxis
     Dosage: UNK
     Route: 065

REACTIONS (7)
  - Drug hypersensitivity [Recovering/Resolving]
  - Acute hepatic failure [Recovered/Resolved]
  - Lactic acidosis [Recovered/Resolved]
  - Encephalopathy [Recovered/Resolved]
  - Generalised oedema [Recovered/Resolved]
  - Condition aggravated [Recovered/Resolved]
  - Haemodynamic instability [Recovered/Resolved]
